FAERS Safety Report 4499231-4 (Version None)
Quarter: 2004Q4

REPORT INFORMATION
  Report Type: 
  Country: None (occurrence: None)
  Receive Date: 20040928
  Receipt Date: 20040805
  Transmission Date: 20050328
  Serious: No
  Sender: FDA-Public Use
  Company Number: 04P-163-0269305-00

PATIENT
  Age: 63 Year
  Sex: Female

DRUGS (7)
  1. HUMIRA [Suspect]
     Indication: RHEUMATOID ARTHRITIS
     Dosage: 40 MG, 1 IN 2 WK, SUBCUTANEOUS
     Route: 058
     Dates: start: 20040728
  2. LEFLUNOMIDE [Concomitant]
  3. ROFECOXIB [Concomitant]
  4. BLOOD PRESSURE PILL [Concomitant]
  5. FISH OIL [Concomitant]
  6. PREDNISONE [Concomitant]
  7. CALCIUM [Concomitant]

REACTIONS (7)
  - FATIGUE [None]
  - INJECTION SITE ERYTHEMA [None]
  - INJECTION SITE NODULE [None]
  - INJECTION SITE PAIN [None]
  - INJECTION SITE PRURITUS [None]
  - PAIN [None]
  - RASH [None]
